FAERS Safety Report 6424420-9 (Version None)
Quarter: 2009Q4

REPORT INFORMATION
  Report Type: 
  Country: None (occurrence: None)
  Receive Date: 20091103
  Receipt Date: 20091023
  Transmission Date: 20100525
  Serious: Yes (Hospitalization)
  Sender: FDA-Public Use
  Company Number: CN-JNJFOC-20091006328

PATIENT
  Sex: Male
  Weight: 66 kg

DRUGS (4)
  1. BLINDED; INFLIXIMAB, RECOMBINANT [Suspect]
     Route: 042
     Dates: start: 20090421, end: 20090922
  2. BLINDED; INFLIXIMAB, RECOMBINANT [Suspect]
     Indication: PSORIASIS
     Route: 042
     Dates: start: 20090421, end: 20090922
  3. PLACEBO [Suspect]
     Route: 042
  4. PLACEBO [Suspect]
     Indication: PSORIASIS
     Route: 042

REACTIONS (1)
  - PULMONARY TUBERCULOSIS [None]
